FAERS Safety Report 25261607 (Version 3)
Quarter: 2025Q3

REPORT INFORMATION
  Report Type: Report from Study
  Country: US (occurrence: US)
  Receive Date: 20250502
  Receipt Date: 20250707
  Transmission Date: 20251020
  Serious: Yes (Hospitalization)
  Sender: ABBVIE
  Company Number: US-ABBVIE-6258289

PATIENT
  Age: 84 Year
  Sex: Female
  Weight: 90.71 kg

DRUGS (2)
  1. SYNTHROID [Suspect]
     Active Substance: LEVOTHYROXINE SODIUM
     Indication: Thyroid disorder
     Dosage: FORM STRENGTH: 112 MICROGRAM
     Route: 048
     Dates: start: 1985
  2. CRESTOR [Concomitant]
     Active Substance: ROSUVASTATIN CALCIUM
     Indication: Blood cholesterol abnormal

REACTIONS (4)
  - Accidental exposure to product [Recovered/Resolved]
  - Respiratory disorder [Recovering/Resolving]
  - Ocular hyperaemia [Recovered/Resolved]
  - Dysphonia [Recovered/Resolved]

NARRATIVE: CASE EVENT DATE: 20250401
